FAERS Safety Report 5473917-7 (Version None)
Quarter: 2007Q3

REPORT INFORMATION
  Report Type: 
  Country: None (occurrence: None)
  Receive Date: 20070831
  Receipt Date: 20070626
  Transmission Date: 20080115
  Serious: No
  Sender: FDA-Public Use
  Company Number: 237783

PATIENT
  Age: 73 Year
  Sex: Female

DRUGS (4)
  1. LUCENTIS [Suspect]
     Indication: MACULAR DEGENERATION
     Dosage: 1/MONTH, INTRAVITREAL
     Dates: start: 20061101
  2. ATENOLOL [Concomitant]
  3. ZOLOFT [Concomitant]
  4. VALIUM [Concomitant]

REACTIONS (1)
  - SCAR [None]
